FAERS Safety Report 18668857 (Version 2)
Quarter: 2020Q4

REPORT INFORMATION
  Report Type: Spontaneous
  Country: PL (occurrence: PL)
  Receive Date: 20201228
  Receipt Date: 20201229
  Transmission Date: 20210114
  Serious: Yes (Death)
  Sender: FDA-Public Use
  Company Number: PL-IPSEN BIOPHARMACEUTICALS, INC.-2020-26155

PATIENT
  Age: 48 Year
  Sex: Female

DRUGS (3)
  1. FLUOROURACIL. [Suspect]
     Active Substance: FLUOROURACIL
     Indication: ADENOCARCINOMA PANCREAS
     Dosage: UNK
     Route: 065
     Dates: start: 20200714, end: 20201021
  2. ONIVYDE [Suspect]
     Active Substance: IRINOTECAN HYDROCHLORIDE
     Indication: ADENOCARCINOMA PANCREAS
     Dosage: UNK
     Route: 065
     Dates: start: 20200714, end: 20201021
  3. LEUCOVORIN. [Suspect]
     Active Substance: LEUCOVORIN
     Indication: ADENOCARCINOMA PANCREAS
     Dosage: UNK
     Route: 065
     Dates: start: 20200714, end: 20201021

REACTIONS (8)
  - Hypertransaminasaemia [Unknown]
  - Hyperbilirubinaemia [Unknown]
  - Jaundice [Unknown]
  - Leukopenia [Unknown]
  - Asthenia [Unknown]
  - Biliary tract infection [Unknown]
  - Disease progression [Fatal]
  - Anaemia [Unknown]

NARRATIVE: CASE EVENT DATE: 2020
